FAERS Safety Report 24869648 (Version 1)
Quarter: 2025Q1

REPORT INFORMATION
  Report Type: Spontaneous
  Country: US (occurrence: None)
  Receive Date: 20250118
  Receipt Date: 20250118
  Transmission Date: 20250409
  Serious: No
  Sender: FDA-CTU
  Company Number: None

PATIENT

DRUGS (1)
  1. TESTOSTERONE CYPIONATE [Suspect]
     Active Substance: TESTOSTERONE CYPIONATE
     Dosage: FREQUENCY : WEEKLY;?
     Route: 042
     Dates: start: 20241002

REACTIONS (2)
  - Syncope [None]
  - Mental disorder [None]

NARRATIVE: CASE EVENT DATE: 20241001
